FAERS Safety Report 18001788 (Version 2)
Quarter: 2021Q1

REPORT INFORMATION
  Report Type: Report from Study
  Country: JP (occurrence: JP)
  Receive Date: 20200709
  Receipt Date: 20210111
  Transmission Date: 20210419
  Serious: Yes (Other)
  Sender: FDA-Public Use
  Company Number: JP-PFIZER INC-2020261319

PATIENT

DRUGS (2)
  1. MIRABEGRON [Suspect]
     Active Substance: MIRABEGRON
     Indication: HYPERTONIC BLADDER
     Dosage: 50 MG, 1X/DAY, (AFTER BREAKFAST, PLUS A 52?WEEK TREATMENT PERIOD)
     Route: 048
  2. TOLTERODINE TARTRATE. [Suspect]
     Active Substance: TOLTERODINE TARTRATE
     Indication: HYPERTONIC BLADDER
     Dosage: 4 MG, 1X/DAY, (EXTENDED?RELEASE, AFTER BREAKFAST)
     Route: 048

REACTIONS (1)
  - Colitis ischaemic [Recovered/Resolved]
